FAERS Safety Report 18970258 (Version 3)
Quarter: 2021Q2

REPORT INFORMATION
  Report Type: Report from Study
  Country: US (occurrence: US)
  Receive Date: 20210304
  Receipt Date: 20210528
  Transmission Date: 20210717
  Serious: No
  Sender: FDA-Public Use
  Company Number: NVSC2021US044504

PATIENT
  Sex: Female

DRUGS (1)
  1. ENTRESTO [Suspect]
     Active Substance: SACUBITRIL\VALSARTAN
     Indication: PRODUCT USED FOR UNKNOWN INDICATION
     Dosage: 100 MG, BID (45.51 MG)
     Route: 048

REACTIONS (4)
  - Hypotension [Recovering/Resolving]
  - Blood pressure fluctuation [Unknown]
  - Pulse abnormal [Unknown]
  - Cardiac disorder [Unknown]
